FAERS Safety Report 20020685 (Version 2)
Quarter: 2021Q4

REPORT INFORMATION
  Report Type: Spontaneous
  Country: US (occurrence: None)
  Receive Date: 20211101
  Receipt Date: 20211122
  Transmission Date: 20220303
  Serious: No
  Sender: FDA-Public Use
  Company Number: 2021A789500

PATIENT
  Age: 71 Year
  Sex: Female
  Weight: 90.7 kg

DRUGS (15)
  1. LOKELMA [Suspect]
     Active Substance: SODIUM ZIRCONIUM CYCLOSILICATE
     Indication: Blood potassium increased
     Dosage: 10.0G UNKNOWN
     Route: 048
     Dates: start: 20210927
  2. VALSARTAN [Concomitant]
     Active Substance: VALSARTAN
  3. AMLODIPINE [Concomitant]
     Active Substance: AMLODIPINE BESYLATE
  4. CLOPIDOGREL [Concomitant]
     Active Substance: CLOPIDOGREL BISULFATE
  5. CLONIDINE [Concomitant]
     Active Substance: CLONIDINE
  6. HYDROCHLOROTHIAZIDE [Concomitant]
     Active Substance: HYDROCHLOROTHIAZIDE
  7. FERROUS SULFATE [Concomitant]
     Active Substance: FERROUS SULFATE
  8. JARDINE [Concomitant]
  9. FOLIC ACID [Concomitant]
     Active Substance: FOLIC ACID
  10. ASPIRIN [Concomitant]
     Active Substance: ASPIRIN
  11. LEVEMIR [Concomitant]
     Active Substance: INSULIN DETEMIR
  12. LANTUS [Concomitant]
     Active Substance: INSULIN GLARGINE
  13. CARVEDILOL [Concomitant]
     Active Substance: CARVEDILOL
  14. LOMOTIL [Concomitant]
     Active Substance: ATROPINE SULFATE\DIPHENOXYLATE HYDROCHLORIDE
  15. VICTOZA [Concomitant]
     Active Substance: LIRAGLUTIDE

REACTIONS (2)
  - Feeling abnormal [Unknown]
  - Diarrhoea [Not Recovered/Not Resolved]

NARRATIVE: CASE EVENT DATE: 20210927
